FAERS Safety Report 6784748-X (Version None)
Quarter: 2010Q2

REPORT INFORMATION
  Report Type: 
  Country: None (occurrence: None)
  Receive Date: 20100622
  Receipt Date: 20100608
  Transmission Date: 20101027
  Serious: Yes (Disabling, Other)
  Sender: FDA-Public Use
  Company Number: PHEH2007US02887

PATIENT
  Sex: Female

DRUGS (20)
  1. AREDIA [Suspect]
     Dosage: 90MG
     Dates: start: 20050101
  2. ZOMETA [Suspect]
     Indication: METASTASES TO BONE
     Dosage: 4MG EVERY 4 WEEKS
     Dates: end: 20060601
  3. FLONASE [Concomitant]
     Dosage: 2 SPRAYS IN EACH NOSTRIL DAILY
     Dates: start: 20020501
  4. MINOCYCLINE HCL [Concomitant]
     Dosage: 100MG CAPSULE
     Dates: start: 20020501
  5. METROGEL [Concomitant]
     Dosage: .75% 45GM
     Dates: start: 20020501
  6. AMOXICILLIN [Concomitant]
     Dosage: 500 MG, TID
     Dates: start: 20020901
  7. AMOXICILLIN SODIUM W/CLAVULANATE POTASSIUM [Concomitant]
     Dosage: 875MG/125MG
     Dates: start: 20030701
  8. PROMETHAZINE [Concomitant]
     Dosage: 25MG EVERY 6 HOURS AS NEEDED
     Dates: start: 20030701
  9. AZITHROMYCIN [Concomitant]
     Dosage: TAKE 2 TABLETS THEN TAKE 1 TABLET FOR 4 MORE DAYS
     Dates: start: 20061101
  10. CLINDAMYCIN HYDROCHLORIDE [Concomitant]
     Dosage: 150MG TAKE ONE TABLET EVERY 6 HOURS
     Dates: start: 20070301
  11. DEXAMETHASONE ACETATE [Concomitant]
     Dosage: 4MG TAKE ONE TABLET 12HOURS PRIOR TO CHEMOTHERAPY AND 1 TABLET 12 HOURS AFTER CHEMOTHERAPY
     Dates: start: 20070701
  12. LORAZEPAM [Concomitant]
     Dosage: 0.5MG TAKE ONE TABLET EVERY 8-12 HOURS AS NEEDED
  13. NAVELBINE [Concomitant]
  14. AVASTIN [Concomitant]
  15. NEUPOGEN [Concomitant]
  16. PROCRIT                            /00909301/ [Concomitant]
  17. ATENOLOL [Concomitant]
  18. LISINOPRIL [Concomitant]
  19. AMBIEN [Concomitant]
  20. TAXOL [Concomitant]
     Dosage: UNK
     Dates: start: 20010301

REACTIONS (11)
  - ANXIETY [None]
  - BONE DISORDER [None]
  - DECREASED INTEREST [None]
  - EXOSTOSIS [None]
  - GENERAL PHYSICAL HEALTH DETERIORATION [None]
  - IMPAIRED HEALING [None]
  - LOOSE TOOTH [None]
  - OSTEONECROSIS OF JAW [None]
  - PAIN [None]
  - SEQUESTRECTOMY [None]
  - TOOTH EXTRACTION [None]
